FAERS Safety Report 5885277-8 (Version None)
Quarter: 2008Q3

REPORT INFORMATION
  Report Type: 
  Country: None (occurrence: None)
  Receive Date: 20080916
  Receipt Date: 20080910
  Transmission Date: 20090109
  Serious: Yes (Other)
  Sender: FDA-Public Use
  Company Number: HQWYE483515JUN05

PATIENT
  Sex: Male
  Weight: 100 kg

DRUGS (6)
  1. SIROLIMUS [Suspect]
     Indication: PROPHYLAXIS AGAINST TRANSPLANT REJECTION
     Route: 048
     Dates: start: 20040807, end: 20050531
  2. LIPEX [Concomitant]
     Indication: HYPERCHOLESTEROLAEMIA
     Route: 048
     Dates: start: 20040902
  3. LIPEX [Concomitant]
     Indication: HYPERTRIGLYCERIDAEMIA
     Route: 065
     Dates: start: 20050502
  4. BACTRIM [Concomitant]
     Dosage: AS PER PROTOCOL
     Route: 065
     Dates: start: 20040806, end: 20050512
  5. PREDNISOLONE [Concomitant]
     Indication: IMMUNOSUPPRESSANT DRUG THERAPY
     Route: 048
     Dates: start: 20011207
  6. PREDNISOLONE [Concomitant]
     Route: 065
     Dates: start: 20050531

REACTIONS (1)
  - RENAL IMPAIRMENT [None]
